FAERS Safety Report 19062995 (Version 1)
Quarter: 2021Q1

REPORT INFORMATION
  Report Type: Spontaneous
  Country: JP (occurrence: JP)
  Receive Date: 20210326
  Receipt Date: 20210326
  Transmission Date: 20210420
  Serious: Yes (Other)
  Sender: FDA-Public Use
  Company Number: JP-SANIK-2021SA097941AA

PATIENT
  Age: 81 Year
  Sex: Male

DRUGS (2)
  1. APIXABAN [Suspect]
     Active Substance: APIXABAN
     Indication: THROMBOSIS
     Dosage: 5 MG/DAY
     Route: 065
  2. PLAVIX [Suspect]
     Active Substance: CLOPIDOGREL BISULFATE
     Indication: THROMBOSIS
     Dosage: 75 MG/DAY
     Route: 048

REACTIONS (6)
  - Somnolence [Recovered/Resolved]
  - Headache [Recovered/Resolved]
  - Gingival bleeding [Recovered/Resolved]
  - Pyrexia [Recovered/Resolved]
  - Meningitis streptococcal [Recovered/Resolved]
  - Bacteraemia [Recovered/Resolved]
